FAERS Safety Report 5376236-2 (Version None)
Quarter: 2007Q3

REPORT INFORMATION
  Report Type: 
  Country: None (occurrence: None)
  Receive Date: 20070702
  Receipt Date: 20070619
  Transmission Date: 20080115
  Serious: Yes (Other)
  Sender: FDA-Public Use
  Company Number: US-ROCHE-503452

PATIENT
  Age: 18 Year
  Sex: Female

DRUGS (3)
  1. ACCUTANE [Suspect]
     Indication: DRUG USE FOR UNKNOWN INDICATION
     Dosage: PATIENT STARTED ON 40 MG DAILY.
     Route: 065
     Dates: start: 20050601
  2. ACCUTANE [Suspect]
     Dosage: THE PATIENT ALTERNATED 40 MG DAILY DOSE WITH 40 MG TWICE DAILY DOSE, ON AN EVERY OTHER DAY REGIMEN.
     Route: 065
     Dates: end: 20051023
  3. ORAL CONTRACEPTIVES NOS [Concomitant]

REACTIONS (1)
  - INJURY [None]
